FAERS Safety Report 22100477 (Version 2)
Quarter: 2023Q1

REPORT INFORMATION
  Report Type: Other
  Country: KR (occurrence: KR)
  Receive Date: 20230316
  Receipt Date: 20230322
  Transmission Date: 20230418
  Serious: Yes (Hospitalization, Congenital Anomaly)
  Sender: FDA-Public Use
  Company Number: KR-ALVOGEN-2023089401

PATIENT
  Sex: Male
  Weight: 3.53 kg

DRUGS (1)
  1. METHOTREXATE [Suspect]
     Active Substance: METHOTREXATE
     Indication: Ectopic pregnancy
     Dosage: THREE TIMES EVERY OTHER DAY UNTIL 4 MONTHS BEFORE PREGNANCY.

REACTIONS (10)
  - Foetal methotrexate syndrome [Unknown]
  - Single umbilical artery [Unknown]
  - Limb reduction defect [Unknown]
  - Atrial septal defect [Unknown]
  - Patent ductus arteriosus [Unknown]
  - Talipes [Unknown]
  - Adactyly [Unknown]
  - Syndactyly [Unknown]
  - Polydactyly [Unknown]
  - Maternal exposure before pregnancy [Unknown]
